FAERS Safety Report 22601307 (Version 1)
Quarter: 2023Q2

REPORT INFORMATION
  Report Type: Spontaneous
  Country: US (occurrence: US)
  Receive Date: 20230614
  Receipt Date: 20230614
  Transmission Date: 20230722
  Serious: No
  Sender: FDA-Public Use
  Company Number: US-RIGEL Pharmaceuticals, INC-2023FOS000209

PATIENT
  Age: 65 Year
  Sex: Female
  Weight: 64.898 kg

DRUGS (1)
  1. TAVALISSE [Suspect]
     Active Substance: FOSTAMATINIB
     Indication: Immune thrombocytopenia
     Dosage: 150 MG, BID, IN THE MORNING AND AT BEDTIME
     Route: 048
     Dates: start: 20230105

REACTIONS (1)
  - Tri-iodothyronine uptake abnormal [Unknown]

NARRATIVE: CASE EVENT DATE: 20230221
